FAERS Safety Report 8461756-4 (Version None)
Quarter: 2012Q2

REPORT INFORMATION
  Report Type: 
  Country: None (occurrence: None)
  Receive Date: 20120618
  Receipt Date: 20120601
  Transmission Date: 20120825
  Serious: Yes (Other)
  Sender: FDA-Public Use
  Company Number: 2012MA006845

PATIENT
  Age: 78 Year
  Sex: Female

DRUGS (5)
  1. VALSATRAN [Concomitant]
  2. METFORMIN HYDROCHLORIDE [Suspect]
     Indication: TYPE 2 DIABETES MELLITUS
     Dosage: 2000 MG; PO
     Route: 048
  3. HYDROCHLOROTHIAZIDE [Concomitant]
  4. VILDAGLIPTIN (NO PREF. NAME) [Suspect]
     Indication: TYPE 2 DIABETES MELLITUS
     Dosage: 100 MG; PO
     Route: 048
  5. LEVOTHYROXINE SODIUM [Concomitant]

REACTIONS (1)
  - PEMPHIGOID [None]
